FAERS Safety Report 7715892-8 (Version None)
Quarter: 2011Q3

REPORT INFORMATION
  Report Type: 
  Country: None (occurrence: None)
  Receive Date: 20110829
  Receipt Date: 20110829
  Transmission Date: 20111222
  Serious: No
  Sender: FDA-Public Use
  Company Number: None

PATIENT
  Sex: Male
  Weight: 63.502 kg

DRUGS (1)
  1. RISPERDAL [Suspect]
     Dates: start: 20110322, end: 20110725

REACTIONS (12)
  - FATIGUE [None]
  - UNEVALUABLE EVENT [None]
  - MUSCLE SPASMS [None]
  - MYALGIA [None]
  - APATHY [None]
  - LIBIDO DECREASED [None]
  - DISTURBANCE IN ATTENTION [None]
  - HEADACHE [None]
  - BRAIN INJURY [None]
  - THIRST [None]
  - READING DISORDER [None]
  - EYE PAIN [None]
